FAERS Safety Report 7850433-6 (Version None)
Quarter: 2011Q4

REPORT INFORMATION
  Report Type: 
  Country: None (occurrence: None)
  Receive Date: 20111026
  Receipt Date: 20111026
  Transmission Date: 20120403
  Serious: Yes (Life-Threatening, Hospitalization)
  Sender: FDA-Public Use
  Company Number: None

PATIENT
  Age: 73 Year
  Sex: Male
  Weight: 78.925 kg

DRUGS (10)
  1. ASPIRIN [Concomitant]
     Route: 048
  2. TOCILIZIMAB [Suspect]
     Indication: RHEUMATOID ARTHRITIS
     Dosage: 4 MG/KG
     Route: 041
     Dates: start: 20110108, end: 20111008
  3. PREDNISONE [Concomitant]
     Dosage: 12.5 MG
     Route: 048
     Dates: start: 19900101, end: 20111025
  4. SIMVASTATIN [Concomitant]
     Route: 048
  5. PRILOSEC [Concomitant]
     Route: 048
  6. ZETIA [Concomitant]
     Route: 048
  7. LISINOPRIL [Concomitant]
     Route: 048
  8. CARVEDILOL [Concomitant]
     Route: 048
  9. DIGOXIN [Concomitant]
     Route: 048
  10. METFORMIN HCL [Concomitant]
     Route: 048

REACTIONS (3)
  - PLEURAL EFFUSION [None]
  - SALMONELLA SEPSIS [None]
  - HYDROPNEUMOTHORAX [None]
